FAERS Safety Report 7960025-6 (Version None)
Quarter: 2011Q4

REPORT INFORMATION
  Report Type: 
  Country: None (occurrence: None)
  Receive Date: 20111206
  Receipt Date: 20111129
  Transmission Date: 20120403
  Serious: Yes (Other)
  Sender: FDA-Public Use
  Company Number: PHHY2011BR104621

PATIENT
  Sex: Male

DRUGS (3)
  1. TRILEPTAL [Suspect]
     Dosage: 2 TABLETS DAILY
  2. TRILEPTAL [Suspect]
     Dosage: 3 TABLETS DAILY
  3. TRILEPTAL [Suspect]
     Dosage: 300 MG, SPLIT THE MEDICATION IN HALF

REACTIONS (3)
  - TREMOR [None]
  - CEREBROVASCULAR ACCIDENT [None]
  - WRONG TECHNIQUE IN DRUG USAGE PROCESS [None]
